FAERS Safety Report 4893247-1 (Version None)
Quarter: 2006Q1

REPORT INFORMATION
  Report Type: 
  Country: None (occurrence: None)
  Receive Date: 20060124
  Receipt Date: 20060111
  Transmission Date: 20060701
  Serious: Yes (Hospitalization, Other)
  Sender: FDA-Public Use
  Company Number: 2006AL000044

PATIENT
  Age: 19 Year
  Sex: Female
  Weight: 91.4 kg

DRUGS (2)
  1. NIFEDIPINE [Suspect]
     Indication: HYPERTENSION
     Dosage: 10 MG; X1; SL
     Route: 060
  2. ZIAC [Concomitant]

REACTIONS (7)
  - CEREBRAL ATROPHY [None]
  - ELECTROCARDIOGRAM T WAVE ABNORMAL [None]
  - EXTRASYSTOLES [None]
  - HEADACHE [None]
  - HEART RATE INCREASED [None]
  - SINUS BRADYCARDIA [None]
  - VENTRICULAR ARRHYTHMIA [None]
